FAERS Safety Report 5400641-9 (Version None)
Quarter: 2007Q3

REPORT INFORMATION
  Report Type: 
  Country: None (occurrence: None)
  Receive Date: 20070725
  Receipt Date: 20070713
  Transmission Date: 20080115
  Serious: Yes (Hospitalization)
  Sender: FDA-Public Use
  Company Number: THQ2007A00491

PATIENT
  Age: 59 Year
  Sex: Male

DRUGS (4)
  1. ACTOS [Suspect]
     Indication: DIABETES MELLITUS
     Dosage: 15 MG (15 MG, 1 IN 1 D) PER ORAL; 30 MG (30 MG, 1 IN 1 D) PER ORAL; 45 MG (45 MG, 1 IN 1 D) PER ORAL
     Route: 048
     Dates: start: 20061001, end: 20061101
  2. ACTOS [Suspect]
     Indication: DIABETES MELLITUS
     Dosage: 15 MG (15 MG, 1 IN 1 D) PER ORAL; 30 MG (30 MG, 1 IN 1 D) PER ORAL; 45 MG (45 MG, 1 IN 1 D) PER ORAL
     Route: 048
     Dates: start: 20061101, end: 20061201
  3. ACTOS [Suspect]
     Indication: DIABETES MELLITUS
     Dosage: 15 MG (15 MG, 1 IN 1 D) PER ORAL; 30 MG (30 MG, 1 IN 1 D) PER ORAL; 45 MG (45 MG, 1 IN 1 D) PER ORAL
     Route: 048
     Dates: start: 20061201, end: 20070101
  4. UNKNOWN (ORAL ANTIDIABETICS) [Concomitant]

REACTIONS (2)
  - PLATELET COUNT DECREASED [None]
  - TEETH BRITTLE [None]
